FAERS Safety Report 8435176-2 (Version None)
Quarter: 2012Q2

REPORT INFORMATION
  Report Type: 
  Country: None (occurrence: None)
  Receive Date: 20120614
  Receipt Date: 20120606
  Transmission Date: 20120825
  Serious: Yes (Other)
  Sender: FDA-Public Use
  Company Number: PHHY2012CA015056

PATIENT
  Sex: Male

DRUGS (8)
  1. PANTOPRAZOLE SODIUM [Concomitant]
     Dosage: 40 MG DAILY
     Dates: start: 20111221
  2. SANDOSTATIN LAR [Suspect]
     Dosage: 20 MG, EVERY 4 WEEKS
     Route: 030
     Dates: start: 20110601
  3. AFINITOR [Suspect]
     Indication: NEUROENDOCRINE CARCINOMA METASTATIC
     Dosage: 10 MG, EVERY DAY
     Route: 048
     Dates: start: 20111015
  4. AFINITOR [Suspect]
     Dosage: 10 MG, EVERY OTHER DAY (FOR A MONTH)
     Route: 048
  5. GABAPENTIN [Concomitant]
     Dosage: 300 MG, TID
     Dates: start: 20111221
  6. DEXAMETHASONE [Concomitant]
     Dosage: 2-4 MG DAILY
     Route: 048
     Dates: start: 20120401
  7. AFINITOR [Suspect]
     Dosage: 5 MG, UNK
     Route: 048
     Dates: start: 20111027, end: 20120423
  8. PANCREASE [Concomitant]
     Dates: start: 20111001

REACTIONS (13)
  - LIVER DISORDER [None]
  - BLOOD BILIRUBIN INCREASED [None]
  - PLATELET COUNT DECREASED [None]
  - WHITE BLOOD CELL COUNT DECREASED [None]
  - JAUNDICE [None]
  - HEPATIC ENZYME INCREASED [None]
  - NEOPLASM MALIGNANT [None]
  - HAEMOGLOBIN DECREASED [None]
  - FATIGUE [None]
  - WEIGHT DECREASED [None]
  - ABDOMINAL DISCOMFORT [None]
  - NEOPLASM PROGRESSION [None]
  - NEUTROPHIL COUNT DECREASED [None]
